FAERS Safety Report 18068606 (Version 1)
Quarter: 2020Q3

REPORT INFORMATION
  Report Type: Spontaneous
  Country: US (occurrence: US)
  Receive Date: 20200724
  Receipt Date: 20200724
  Transmission Date: 20201103
  Serious: Yes (Hospitalization)
  Sender: FDA-Public Use
  Company Number: US-GE HEALTHCARE LIFE SCIENCES-2020CSU003067

PATIENT
  Age: 84 Year
  Sex: Female

DRUGS (3)
  1. VISIPAQUE [Suspect]
     Active Substance: IODIXANOL
     Indication: STENT PLACEMENT
  2. VISIPAQUE [Suspect]
     Active Substance: IODIXANOL
     Indication: CAROTID ARTERY STENOSIS
  3. VISIPAQUE [Suspect]
     Active Substance: IODIXANOL
     Indication: ANGIOPLASTY
     Dosage: 81 ML, SINGLE
     Route: 013

REACTIONS (1)
  - Contrast encephalopathy [Recovered/Resolved]
